FAERS Safety Report 4903965-4 (Version None)
Quarter: 2006Q1

REPORT INFORMATION
  Report Type: 
  Country: None (occurrence: None)
  Receive Date: 20060208
  Receipt Date: 20050803
  Transmission Date: 20060701
  Serious: No
  Sender: FDA-Public Use
  Company Number: US-GLAXOSMITHKLINE-A0568814A

PATIENT
  Age: 25 Year
  Sex: Male

DRUGS (2)
  1. PAXIL [Suspect]
     Dosage: 15MG PER DAY
     Route: 048
  2. WELLBUTRIN XL [Concomitant]
     Route: 048

REACTIONS (4)
  - ANXIETY [None]
  - DRUG ADMINISTRATION ERROR [None]
  - OBSESSIVE-COMPULSIVE DISORDER [None]
  - POOR QUALITY DRUG ADMINISTERED [None]
